FAERS Safety Report 21823591 (Version 1)
Quarter: 2023Q1

REPORT INFORMATION
  Report Type: Spontaneous
  Country: GB (occurrence: GB)
  Receive Date: 20230105
  Receipt Date: 20230105
  Transmission Date: 20230418
  Serious: Yes (Hospitalization, Other)
  Sender: FDA-Public Use
  Company Number: GB-MYLANLABS-2022M1080248

PATIENT
  Age: 38 Year
  Sex: Male

DRUGS (2)
  1. CLOZARIL [Suspect]
     Active Substance: CLOZAPINE
     Indication: Schizophrenia
     Dosage: UNK
     Route: 048
     Dates: start: 20140106
  2. CLOZARIL [Suspect]
     Active Substance: CLOZAPINE
     Dosage: 7000 MILLIGRAM
     Route: 065
     Dates: start: 20221227

REACTIONS (6)
  - Overdose [Unknown]
  - Epilepsy [Unknown]
  - Seizure [Unknown]
  - Full blood count abnormal [Unknown]
  - Blood creatine phosphokinase increased [Unknown]
  - Mean cell volume increased [Unknown]

NARRATIVE: CASE EVENT DATE: 20220718
